FAERS Safety Report 18024009 (Version 2)
Quarter: 2020Q3

REPORT INFORMATION
  Report Type: Spontaneous
  Country: GB (occurrence: GB)
  Receive Date: 20200715
  Receipt Date: 20200720
  Transmission Date: 20201103
  Serious: Yes (Hospitalization, Other)
  Sender: FDA-Public Use
  Company Number: GB-ASTELLAS-2020US015607

PATIENT
  Age: 27 Year
  Sex: Male

DRUGS (7)
  1. GILTERITINIB [Suspect]
     Active Substance: GILTERITINIB
     Indication: ACUTE MYELOID LEUKAEMIA
     Route: 048
  2. DEXAMETHASONE. [Concomitant]
     Active Substance: DEXAMETHASONE
     Dosage: UNK UNK, UNKNOWN FREQ.
     Route: 065
  3. RASBURICASE [Concomitant]
     Active Substance: RASBURICASE
     Indication: HYPERLEUKOCYTOSIS
     Dosage: UNK UNK, UNKNOWN FREQ.
     Route: 065
  4. DEXAMETHASONE. [Concomitant]
     Active Substance: DEXAMETHASONE
     Indication: HYPERLEUKOCYTOSIS
     Dosage: UNK UNK, UNKNOWN FREQ.
     Route: 065
  5. CYTARABINE. [Concomitant]
     Active Substance: CYTARABINE
     Indication: HYPERLEUKOCYTOSIS
     Dosage: 100 MG/M2, CYCLIC  (3 DOSES)
     Route: 065
  6. GILTERITINIB [Suspect]
     Active Substance: GILTERITINIB
     Route: 048
  7. HYDROXYCARBAMIDE [Concomitant]
     Active Substance: HYDROXYUREA
     Indication: HYPERLEUKOCYTOSIS
     Dosage: UNK UNK, UNKNOWN FREQ.
     Route: 065

REACTIONS (5)
  - Escherichia bacteraemia [Unknown]
  - Product use in unapproved indication [Unknown]
  - Septic shock [Unknown]
  - COVID-19 [Unknown]
  - Cardiomyopathy [Unknown]
